FAERS Safety Report 5091333-7 (Version None)
Quarter: 2006Q3

REPORT INFORMATION
  Report Type: 
  Country: None (occurrence: None)
  Receive Date: 20060829
  Receipt Date: 20060119
  Transmission Date: 20061208
  Serious: No
  Sender: FDA-Public Use
  Company Number: US-GLAXOSMITHKLINE-A0590074A

PATIENT
  Age: 46 Year
  Sex: Female

DRUGS (3)
  1. BECONASE [Suspect]
     Dosage: 84MCG TWICE PER DAY
     Route: 045
     Dates: start: 19950101
  2. CLARINEX [Concomitant]
  3. SYNTHROID [Concomitant]

REACTIONS (3)
  - NASAL DRYNESS [None]
  - NASAL ODOUR [None]
  - PHARMACEUTICAL PRODUCT COMPLAINT [None]
